FAERS Safety Report 15094869 (Version 2)
Quarter: 2018Q3

REPORT INFORMATION
  Report Type: Spontaneous
  Country: US (occurrence: US)
  Receive Date: 20180701
  Receipt Date: 20180925
  Transmission Date: 20181010
  Serious: No
  Sender: FDA-Public Use
  Company Number: US-ASTRAZENECA-2018SE74707

PATIENT
  Age: 823 Month
  Sex: Female
  Weight: 72.6 kg

DRUGS (1)
  1. SYMBICORT [Suspect]
     Active Substance: BUDESONIDE\FORMOTEROL FUMARATE DIHYDRATE
     Indication: ASTHMA
     Dosage: 160/2 PUFFS TWICE DAILY
     Route: 055
     Dates: start: 201711

REACTIONS (4)
  - Underdose [Unknown]
  - Device malfunction [Unknown]
  - Intentional device misuse [Unknown]
  - Wheezing [Unknown]

NARRATIVE: CASE EVENT DATE: 201805
